FAERS Safety Report 24111270 (Version 1)
Quarter: 2024Q3

REPORT INFORMATION
  Report Type: Spontaneous
  Country: TW (occurrence: TW)
  Receive Date: 20240718
  Receipt Date: 20240718
  Transmission Date: 20241016
  Serious: Yes (Other)
  Sender: BRISTOL MYERS SQUIBB
  Company Number: TW-BRISTOL-MYERS SQUIBB COMPANY-2024-113956

PATIENT
  Age: 61 Year
  Sex: Female

DRUGS (1)
  1. OPDIVO [Suspect]
     Active Substance: NIVOLUMAB
     Indication: Colorectal cancer metastatic
     Route: 042

REACTIONS (1)
  - Oesophageal squamous cell carcinoma [Unknown]
